FAERS Safety Report 8378757-7 (Version None)
Quarter: 2012Q2

REPORT INFORMATION
  Report Type: 
  Country: None (occurrence: None)
  Receive Date: 20120522
  Receipt Date: 20120516
  Transmission Date: 20120825
  Serious: Yes (Other)
  Sender: FDA-Public Use
  Company Number: US-AMGEN-USASP2012030458

PATIENT
  Age: 69 Year
  Sex: Male
  Weight: 106.58 kg

DRUGS (7)
  1. BYSTOLIC [Concomitant]
     Indication: HYPERTENSION
     Dosage: UNK
  2. CIALIS [Concomitant]
     Dosage: UNK
  3. COUMADIN [Concomitant]
     Indication: ATRIAL FIBRILLATION
     Dosage: UNK
     Dates: end: 20120507
  4. EDECRIN [Concomitant]
     Dosage: UNK
  5. PROCRIT [Suspect]
     Indication: RENAL FAILURE CHRONIC
     Dosage: 40000 IU, Q3WK
     Route: 058
     Dates: start: 20090601
  6. CALCITRIOL [Concomitant]
     Indication: RENAL FAILURE CHRONIC
     Dosage: UNK
  7. HYDREA [Concomitant]
     Dosage: UNK

REACTIONS (4)
  - HAEMOGLOBIN DECREASED [None]
  - BONE MARROW DISORDER [None]
  - RETICULOCYTE COUNT ABNORMAL [None]
  - HAEMATOCRIT DECREASED [None]
